FAERS Safety Report 16061550 (Version 6)
Quarter: 2021Q3

REPORT INFORMATION
  Report Type: Spontaneous
  Country: US (occurrence: US)
  Receive Date: 20190312
  Receipt Date: 20210906
  Transmission Date: 20211014
  Serious: Yes (Hospitalization, Other)
  Sender: FDA-Public Use
  Company Number: US-PFIZER INC-2019101615

PATIENT
  Age: 61 Year
  Sex: Female
  Weight: 66.21 kg

DRUGS (4)
  1. IBRANCE [Suspect]
     Active Substance: PALBOCICLIB
     Indication: BREAST CANCER METASTATIC
     Dosage: UNK
     Dates: start: 20190222
  2. IBRANCE [Suspect]
     Active Substance: PALBOCICLIB
     Dosage: 125 MG, CYCLIC (DAILY ON DAYS 1 TO 21 OF 28 DAYS/QD (ONCE A DAY) X 21 D)
     Route: 048
     Dates: start: 20210211
  3. IBRANCE [Suspect]
     Active Substance: PALBOCICLIB
     Indication: BREAST CANCER METASTATIC
     Dosage: 125 MG, DAILY  (FOR 21 DAYS)
     Route: 048
     Dates: start: 20210210
  4. LETROZOLE. [Concomitant]
     Active Substance: LETROZOLE
     Dosage: UNK

REACTIONS (10)
  - Rhinorrhoea [Not Recovered/Not Resolved]
  - Dyspepsia [Recovering/Resolving]
  - Seizure [Not Recovered/Not Resolved]
  - Loss of personal independence in daily activities [Unknown]
  - Dizziness [Unknown]
  - Weight decreased [Not Recovered/Not Resolved]
  - Paraesthesia [Unknown]
  - Weight increased [Unknown]
  - Gastrooesophageal reflux disease [Not Recovered/Not Resolved]
  - Hypersensitivity [Not Recovered/Not Resolved]

NARRATIVE: CASE EVENT DATE: 20210412
